FAERS Safety Report 10469822 (Version 1)
Quarter: 2014Q3

REPORT INFORMATION
  Report Type: Spontaneous
  Country: US (occurrence: None)
  Receive Date: 20140922
  Receipt Date: 20140922
  Transmission Date: 20150326
  Serious: No
  Sender: FDA-Public Use
  Company Number: None

PATIENT
  Age: 3 Year
  Sex: Female
  Weight: 18.14 kg

DRUGS (1)
  1. CEFPROZIL. [Suspect]
     Active Substance: CEFPROZIL
     Indication: DERMATITIS INFECTED
     Route: 048
     Dates: start: 20140827, end: 20140901

REACTIONS (3)
  - Rash papular [None]
  - Rash pruritic [None]
  - Rash generalised [None]

NARRATIVE: CASE EVENT DATE: 20140829
